FAERS Safety Report 12310641 (Version 1)
Quarter: 2016Q2

REPORT INFORMATION
  Report Type: Other
  Country: IT (occurrence: IT)
  Receive Date: 20160427
  Receipt Date: 20160427
  Transmission Date: 20160815
  Serious: Yes (Other)
  Sender: FDA-Public Use
  Company Number: IT-MYLANLABS-2016M1016925

PATIENT

DRUGS (12)
  1. TEGRETOL [Suspect]
     Active Substance: CARBAMAZEPINE
     Indication: EPILEPSY
     Dosage: 1000 MG DAILY
     Route: 048
     Dates: start: 20140101
  2. SEROQUEL [Suspect]
     Active Substance: QUETIAPINE FUMARATE
     Indication: SCHIZOPHRENIA
     Dosage: 800 MG DAILY
     Route: 048
     Dates: start: 20140101, end: 20160405
  3. GABAPENTIN. [Suspect]
     Active Substance: GABAPENTIN
     Indication: EPILEPSY
     Dosage: 1200 MG DAILY
     Route: 048
     Dates: start: 20140101, end: 20160405
  4. LARGACTIL                          /00011902/ [Suspect]
     Active Substance: CHLORPROMAZINE HYDROCHLORIDE
     Indication: HALLUCINATION, VISUAL
     Dosage: 200 MG DAILY
     Route: 048
     Dates: start: 20140101, end: 20160404
  5. SERENASE                           /00027401/ [Suspect]
     Active Substance: HALOPERIDOL
     Indication: AGITATION
     Dosage: 15 MG DAILY
     Route: 048
     Dates: start: 20140101, end: 20160405
  6. TALOFEN [Suspect]
     Active Substance: PROMAZINE HYDROCHLORIDE
     Indication: AGITATION
     Dosage: 15 GTT
     Route: 048
     Dates: start: 20140101, end: 20160405
  7. NEULEPTIL                          /00038401/ [Suspect]
     Active Substance: PERICIAZINE
     Indication: ACUTE PSYCHOSIS
     Dosage: 30 MG DAILY
     Route: 048
     Dates: start: 20140101, end: 20160405
  8. RIVOTRIL [Suspect]
     Active Substance: CLONAZEPAM
     Indication: EPILEPSY
     Dosage: 3 MG DAILY
     Route: 048
     Dates: start: 20140101, end: 20160404
  9. TEGRETOL [Suspect]
     Active Substance: CARBAMAZEPINE
     Dosage: 1200 MG, QD
     Route: 048
     Dates: start: 20160405
  10. RIVOTRIL [Suspect]
     Active Substance: CLONAZEPAM
     Dosage: 2 MG, QD
     Route: 048
     Dates: start: 20160405
  11. LARGACTIL                          /00011902/ [Suspect]
     Active Substance: CHLORPROMAZINE HYDROCHLORIDE
     Dosage: 100 MG, QD
     Route: 048
     Dates: start: 20160405
  12. AKINETON                           /00079503/ [Suspect]
     Active Substance: BIPERIDEN LACTATE
     Indication: TREMOR
     Dosage: 4 MG DAILY
     Route: 048
     Dates: start: 20140101, end: 20160405

REACTIONS (4)
  - Tremor [Recovering/Resolving]
  - Confusional state [Recovering/Resolving]
  - Stereotypy [Recovering/Resolving]
  - Disorganised speech [Recovering/Resolving]

NARRATIVE: CASE EVENT DATE: 20160405
